FAERS Safety Report 18431653 (Version 2)
Quarter: 2024Q2

REPORT INFORMATION
  Report Type: Spontaneous
  Country: JP (occurrence: JP)
  Receive Date: 20201027
  Receipt Date: 20240617
  Transmission Date: 20240716
  Serious: Yes (Death, Other)
  Sender: FDA-Public Use
  Company Number: JP-PFIZER INC-2016115998

PATIENT
  Age: 81 Year
  Sex: Male

DRUGS (1)
  1. VFEND [Suspect]
     Active Substance: VORICONAZOLE
     Indication: Bronchopulmonary aspergillosis
     Dosage: 200 MG, 1X/DAY
     Route: 048
     Dates: start: 200511, end: 201002

REACTIONS (4)
  - Squamous cell carcinoma [Fatal]
  - Photosensitivity reaction [Unknown]
  - Actinic keratosis [Unknown]
  - Off label use [Unknown]

NARRATIVE: CASE EVENT DATE: 20051101
